FAERS Safety Report 4752331-3 (Version None)
Quarter: 2005Q3

REPORT INFORMATION
  Report Type: 
  Country: None (occurrence: None)
  Receive Date: 20050825
  Receipt Date: 20050620
  Transmission Date: 20060218
  Serious: Yes (Hospitalization)
  Sender: FDA-Public Use
  Company Number: FR-GLAXOSMITHKLINE-B0385312A

PATIENT
  Age: 49 Year
  Sex: Female
  Weight: 79 kg

DRUGS (6)
  1. PAROXETINE HCL [Suspect]
     Dosage: 40MG PER DAY
     Route: 048
     Dates: start: 20040625, end: 20050526
  2. BENERVA [Suspect]
     Route: 048
     Dates: start: 20050415, end: 20050525
  3. DIPIPERON [Suspect]
     Dosage: 60MG PER DAY
     Route: 048
     Dates: start: 20050125, end: 20050526
  4. HEPTAMYL [Suspect]
     Route: 048
     Dates: start: 20040927, end: 20050525
  5. MODECATE [Suspect]
     Dosage: 50MG MONTHLY
     Route: 030
     Dates: start: 20050315
  6. TERCIAN [Concomitant]
     Dosage: 50MG PER DAY
     Route: 048
     Dates: start: 20050405

REACTIONS (3)
  - HEPATOCELLULAR DAMAGE [None]
  - MYALGIA [None]
  - RHABDOMYOLYSIS [None]
